FAERS Safety Report 16775241 (Version 6)
Quarter: 2019Q4

REPORT INFORMATION
  Report Type: Report from Study
  Country: US (occurrence: US)
  Receive Date: 20190905
  Receipt Date: 20191219
  Transmission Date: 20200122
  Serious: Yes (Hospitalization, Other)
  Sender: FDA-Public Use
  Company Number: US-TESAROUBC-2019-TSO02851-US

PATIENT
  Age: 80 Year
  Sex: Female

DRUGS (7)
  1. NIRAPARIB [Suspect]
     Active Substance: NIRAPARIB
     Indication: OVARIAN CANCER
     Dosage: 300 MG, QD
     Route: 048
     Dates: start: 20190726
  2. METOPROLOL. [Suspect]
     Active Substance: METOPROLOL
     Indication: HYPOTENSION
     Dosage: 50 MG TWICE A DAY
  3. MORPHINE [Concomitant]
     Active Substance: MORPHINE
     Indication: DIABETIC NEUROPATHY
     Dosage: 30 MG, IN THE MORNING
  4. NIRAPARIB [Suspect]
     Active Substance: NIRAPARIB
     Dosage: 300 MG, ONCE A DAY
     Route: 065
     Dates: start: 20190818
  5. GLIMEPIRIDE. [Concomitant]
     Active Substance: GLIMEPIRIDE
     Indication: TYPE 2 DIABETES MELLITUS
     Dosage: OCCASIONALLY
  6. GABAPENTIN. [Concomitant]
     Active Substance: GABAPENTIN
     Indication: DIABETIC NEUROPATHY
     Dosage: 300 MG, IN THE MORNING
  7. METOPROLOL. [Suspect]
     Active Substance: METOPROLOL
     Dosage: 25 MG, QD

REACTIONS (18)
  - Hypotension [Recovered/Resolved]
  - Fatigue [Unknown]
  - Urinary retention [Unknown]
  - Ureteral stent insertion [Unknown]
  - Dry mouth [Unknown]
  - Headache [Recovering/Resolving]
  - Micturition urgency [Unknown]
  - Constipation [Not Recovered/Not Resolved]
  - Neck pain [Unknown]
  - Vomiting [Unknown]
  - Product dose omission [Unknown]
  - Adverse drug reaction [Unknown]
  - Fall [Unknown]
  - Low density lipoprotein increased [Unknown]
  - Back pain [Not Recovered/Not Resolved]
  - Taste disorder [Unknown]
  - Blood uric acid increased [Unknown]
  - Diarrhoea [Not Recovered/Not Resolved]

NARRATIVE: CASE EVENT DATE: 20190812
